FAERS Safety Report 9443529 (Version 1)
Quarter: 2013Q3

REPORT INFORMATION
  Report Type: Spontaneous
  Country: US (occurrence: US)
  Receive Date: 20130806
  Receipt Date: 20130806
  Transmission Date: 20140515
  Serious: No
  Sender: FDA-Public Use
  Company Number: US-PFIZER INC-2013227525

PATIENT
  Age: 52 Year
  Sex: Female
  Weight: 77.1 kg

DRUGS (2)
  1. LIPITOR [Suspect]
     Indication: BLOOD CHOLESTEROL INCREASED
     Dosage: 1 DF, DAILY
     Route: 048
  2. CRESTOR [Suspect]
     Dosage: UNK

REACTIONS (2)
  - Pain in extremity [Recovered/Resolved]
  - Abdominal pain [Recovered/Resolved]
